FAERS Safety Report 20085629 (Version 2)
Quarter: 2022Q1

REPORT INFORMATION
  Report Type: Spontaneous
  Country: IR (occurrence: IR)
  Receive Date: 20211118
  Receipt Date: 20220113
  Transmission Date: 20220424
  Serious: Yes (Death)
  Sender: FDA-Public Use
  Company Number: IR-PFIZER INC-202101566371

PATIENT
  Age: 4 Year
  Sex: Male

DRUGS (10)
  1. AZITHROMYCIN [Suspect]
     Active Substance: AZITHROMYCIN
     Indication: Pseudomonas infection
     Dosage: UNK
  2. MEROPENEM [Suspect]
     Active Substance: MEROPENEM
     Indication: Pseudomonas infection
     Dosage: UNK
  3. VANCOMYCIN [Suspect]
     Active Substance: VANCOMYCIN
     Indication: Pseudomonas infection
     Dosage: UNK
  4. PIPERACILLIN SODIUM\TAZOBACTAM SODIUM [Suspect]
     Active Substance: PIPERACILLIN SODIUM\TAZOBACTAM SODIUM
     Indication: Pseudomonas infection
     Dosage: UNK
  5. AMIKACIN [Suspect]
     Active Substance: AMIKACIN
     Indication: Pseudomonas infection
     Dosage: UNK
  6. COTRIMOXAZOLE [Suspect]
     Active Substance: SULFAMETHOXAZOLE\TRIMETHOPRIM
     Indication: Pseudomonas infection
     Dosage: UNK
  7. OSELTAMIVIR [Concomitant]
     Active Substance: OSELTAMIVIR
     Indication: Pseudomonas infection
     Dosage: UNK
  8. AMPHOTERICIN B [Concomitant]
     Active Substance: AMPHOTERICIN B
     Indication: Pseudomonas infection
     Dosage: UNK, LIPOSOMAL
  9. VORICONAZOLE [Concomitant]
     Active Substance: VORICONAZOLE
     Indication: Pseudomonas infection
     Dosage: UNK
  10. CASPOFUNGIN [Concomitant]
     Active Substance: CASPOFUNGIN
     Indication: Pseudomonas infection
     Dosage: UNK

REACTIONS (1)
  - Drug ineffective [Fatal]
